FAERS Safety Report 9931204 (Version 2)
Quarter: 2014Q3

REPORT INFORMATION
  Report Type: Report from Study
  Country: JP (occurrence: JP)
  Receive Date: 20140228
  Receipt Date: 20140724
  Transmission Date: 20150326
  Serious: Yes (Death, Hospitalization, Other)
  Sender: FDA-Public Use
  Company Number: JP-ROCHE-1355283

PATIENT
  Age: 74 Year
  Sex: Male

DRUGS (16)
  1. METHOXY POLYETHYLENE GLYCOL-EPOETIN BETA [Suspect]
     Active Substance: PEGZEREPOETIN ALFA
     Indication: NEPHROGENIC ANAEMIA
     Route: 058
     Dates: start: 20130213, end: 20130310
  2. LEUPLIN [Concomitant]
     Active Substance: LEUPROLIDE ACETATE
     Route: 058
  3. SODIUM BICARBONATE. [Concomitant]
     Active Substance: SODIUM BICARBONATE
     Indication: DIABETIC NEPHROPATHY
     Route: 048
     Dates: end: 20130621
  4. FERROMIA [Concomitant]
     Active Substance: FERROUS CITRATE
     Indication: DIABETIC NEPHROPATHY
     Route: 048
     Dates: start: 20130703
  5. FEBURIC [Concomitant]
     Active Substance: FEBUXOSTAT
     Indication: DIABETIC NEPHROPATHY
     Route: 048
  6. METHOXY POLYETHYLENE GLYCOL-EPOETIN BETA [Suspect]
     Active Substance: PEGZEREPOETIN ALFA
     Indication: NEPHROGENIC ANAEMIA
     Route: 058
     Dates: start: 20130731, end: 20130731
  7. ZETIA [Concomitant]
     Active Substance: EZETIMIBE
     Route: 048
  8. METHOXY POLYETHYLENE GLYCOL-EPOETIN BETA [Suspect]
     Active Substance: PEGZEREPOETIN ALFA
     Indication: NEPHROGENIC ANAEMIA
     Route: 058
     Dates: start: 20130311, end: 20130730
  9. NOVORAPID [Concomitant]
     Active Substance: INSULIN ASPART
     Route: 058
     Dates: start: 20130806
  10. SODIUM BICARBONATE. [Concomitant]
     Active Substance: SODIUM BICARBONATE
     Indication: DIABETIC NEPHROPATHY
     Route: 048
     Dates: start: 20130622
  11. CONIEL [Concomitant]
     Active Substance: BENIDIPINE HYDROCHLORIDE
     Route: 048
  12. BAYASPIRIN [Concomitant]
     Active Substance: ASPIRIN
     Route: 048
  13. CALTAN [Concomitant]
     Active Substance: CALCIUM CARBONATE
     Indication: DIABETIC NEPHROPATHY
     Dosage: REPORTED AS CALTAN OD
     Route: 048
  14. NOVOLIN R [Concomitant]
     Active Substance: INSULIN HUMAN
     Route: 058
     Dates: end: 20130806
  15. FERROUS SULFATE [Concomitant]
     Active Substance: FERROUS SULFATE\FERROUS SULFATE, DRIED
     Indication: DIABETIC NEPHROPATHY
     Route: 048
     Dates: end: 20130703
  16. MICARDIS [Concomitant]
     Active Substance: TELMISARTAN
     Indication: DIABETIC NEPHROPATHY
     Route: 048

REACTIONS (12)
  - Renal impairment [Not Recovered/Not Resolved]
  - Renal impairment [Fatal]
  - Dementia [Not Recovered/Not Resolved]
  - Clavicle fracture [Recovering/Resolving]
  - Fall [Unknown]
  - Traumatic intracranial haemorrhage [Not Recovered/Not Resolved]
  - Avulsion fracture [Recovering/Resolving]
  - Contusion [Unknown]
  - Ligament sprain [Unknown]
  - Hypertension [Recovering/Resolving]
  - Restlessness [Unknown]
  - Hypoglycaemia [Recovering/Resolving]

NARRATIVE: CASE EVENT DATE: 20130410
